FAERS Safety Report 9527625 (Version 1)
Quarter: 2013Q1

REPORT INFORMATION
  Report Type: Spontaneous
  Country: US (occurrence: None)
  Receive Date: 20130314
  Receipt Date: 20130314
  Transmission Date: 20140127
  Serious: No
  Sender: FDA-Public Use
  Company Number: 1211USA006132

PATIENT
  Age: 58 Year
  Sex: Male

DRUGS (3)
  1. VICTRELIS (BOCEPREVIR) CAPSULE [Suspect]
     Indication: HEPATITIS C
     Route: 048
  2. PEGASYS (PEGINTERFERON ALFA-2A) [Suspect]
     Indication: HEPATITIS C
  3. RIBAPAK (RIBAVIRIN) [Suspect]
     Indication: HEPATITIS C

REACTIONS (5)
  - Dyspepsia [None]
  - Headache [None]
  - Pruritus generalised [None]
  - Fatigue [None]
  - Nausea [None]
